FAERS Safety Report 23287748 (Version 1)
Quarter: 2023Q4

REPORT INFORMATION
  Report Type: Report from Study
  Country: US (occurrence: US)
  Receive Date: 20231212
  Receipt Date: 20231212
  Transmission Date: 20240109
  Serious: No
  Sender: FDA-Public Use
  Company Number: US-ALXN-A202114008

PATIENT
  Age: 70 Year
  Sex: Male

DRUGS (4)
  1. STRENSIQ [Suspect]
     Active Substance: ASFOTASE ALFA
     Indication: Hypophosphatasia
     Dosage: UNK
     Route: 058
  2. COVID-19 VACCINE NOS [Suspect]
     Active Substance: COVID-19 VACCINE NOS
     Indication: COVID-19 immunisation
     Dosage: UNK
     Route: 065
  3. VITAMIN K [Concomitant]
     Active Substance: PHYTONADIONE
     Indication: Osteoarthritis
     Dosage: UNK
     Route: 065
     Dates: start: 2016
  4. MK 4 [Concomitant]
     Indication: Osteoarthritis
     Dosage: 400 MG, UNK
     Route: 065

REACTIONS (27)
  - Post-acute COVID-19 syndrome [Recovering/Resolving]
  - Underdose [Unknown]
  - Feeling cold [Not Recovered/Not Resolved]
  - Fatigue [Not Recovered/Not Resolved]
  - Persistent depressive disorder [Unknown]
  - Dehydration [Unknown]
  - Inflammation [Unknown]
  - Depressed mood [Unknown]
  - Blood aldosterone decreased [Unknown]
  - Attention deficit hyperactivity disorder [Unknown]
  - Restless legs syndrome [Recovering/Resolving]
  - Product dose omission issue [Unknown]
  - Postural orthostatic tachycardia syndrome [Unknown]
  - Poor quality sleep [Recovering/Resolving]
  - Temperature intolerance [Unknown]
  - Urine calcium [Unknown]
  - Confusional state [Unknown]
  - Pain [Unknown]
  - Asthenia [Unknown]
  - Bradykinesia [Unknown]
  - Vitamin B6 decreased [Unknown]
  - Headache [Unknown]
  - Suspected COVID-19 [Unknown]
  - Rhinorrhoea [Unknown]
  - Pain in extremity [Unknown]
  - Feeling abnormal [Unknown]
  - Thinking abnormal [Unknown]

NARRATIVE: CASE EVENT DATE: 20200301
